FAERS Safety Report 5145333-9 (Version None)
Quarter: 2006Q4

REPORT INFORMATION
  Report Type: 
  Country: None (occurrence: None)
  Receive Date: 20061101
  Receipt Date: 20061017
  Transmission Date: 20070319
  Serious: Yes (Hospitalization, Other)
  Sender: FDA-Public Use
  Company Number: 8019745

PATIENT
  Age: 44 Year
  Sex: Female

DRUGS (1)
  1. PREDNISONE [Suspect]
     Indication: ANAEMIA HAEMOLYTIC AUTOIMMUNE
     Dosage: 30 MG

REACTIONS (15)
  - BACTERIAL INFECTION [None]
  - BRAIN ABSCESS [None]
  - CEREBRAL DISORDER [None]
  - CONFUSIONAL STATE [None]
  - DISORIENTATION [None]
  - FACIAL PALSY [None]
  - HAEMOLYTIC ANAEMIA [None]
  - HEMIPARESIS [None]
  - METASTASES TO CENTRAL NERVOUS SYSTEM [None]
  - MUSCULAR WEAKNESS [None]
  - NERVOUS SYSTEM DISORDER [None]
  - NEUTROPHILIA [None]
  - NOCARDIOSIS [None]
  - PLEURAL EFFUSION [None]
  - WHITE BLOOD CELL COUNT INCREASED [None]
